FAERS Safety Report 25758487 (Version 1)
Quarter: 2025Q3

REPORT INFORMATION
  Report Type: Spontaneous
  Country: CN (occurrence: CN)
  Receive Date: 20250904
  Receipt Date: 20250904
  Transmission Date: 20251021
  Serious: Yes (Other)
  Sender: BEIGENE
  Company Number: CN-BEIGENE-BGN-2025-014610

PATIENT
  Age: 65 Year
  Weight: 56 kg

DRUGS (10)
  1. TISLELIZUMAB [Suspect]
     Active Substance: TISLELIZUMAB
     Indication: Hodgkin^s disease
  2. TISLELIZUMAB [Suspect]
     Active Substance: TISLELIZUMAB
     Route: 041
  3. TISLELIZUMAB [Suspect]
     Active Substance: TISLELIZUMAB
     Route: 041
  4. TISLELIZUMAB [Suspect]
     Active Substance: TISLELIZUMAB
  5. ETOPOSIDE [Concomitant]
     Active Substance: ETOPOSIDE
     Indication: Hodgkin^s disease
     Route: 041
  6. ETOPOSIDE [Concomitant]
     Active Substance: ETOPOSIDE
  7. CARBOPLATIN [Concomitant]
     Active Substance: CARBOPLATIN
     Indication: Hodgkin^s disease
     Route: 041
  8. CARBOPLATIN [Concomitant]
     Active Substance: CARBOPLATIN
  9. IFOSFAMIDE [Concomitant]
     Active Substance: IFOSFAMIDE
     Indication: Hodgkin^s disease
     Route: 041
  10. IFOSFAMIDE [Concomitant]
     Active Substance: IFOSFAMIDE

REACTIONS (4)
  - Granulocyte count decreased [Recovering/Resolving]
  - Asthenia [Unknown]
  - Decreased appetite [Unknown]
  - Nausea [Unknown]
